FAERS Safety Report 4264850-7 (Version None)
Quarter: 2004Q1

REPORT INFORMATION
  Report Type: 
  Country: None (occurrence: None)
  Receive Date: 20040105
  Receipt Date: 20031217
  Transmission Date: 20041129
  Serious: Yes (Hospitalization)
  Sender: FDA-Public Use
  Company Number: STA-AE-03-MTX-108

PATIENT
  Age: 50 Year
  Sex: Female

DRUGS (4)
  1. RHEUMATREX [Suspect]
     Indication: RHEUMATOID ARTHRITIS
     Dosage: 4 MG 1X PER 1 WK, ORAL
     Route: 048
     Dates: start: 20031027
  2. RIMATIL (BUCILLAMINE) [Concomitant]
  3. CLINORIL [Concomitant]
  4. PREDNISOLONE [Concomitant]

REACTIONS (9)
  - ABDOMINAL PAIN [None]
  - BACK PAIN [None]
  - DYSPNOEA [None]
  - HEADACHE [None]
  - HYPOAESTHESIA [None]
  - ILLUSION [None]
  - MUSCLE RIGIDITY [None]
  - NECK PAIN [None]
  - PAIN IN EXTREMITY [None]
